FAERS Safety Report 16798764 (Version 1)
Quarter: 2019Q4

REPORT INFORMATION
  Report Type: Spontaneous
  Country: US (occurrence: US)
  Receive Date: 20190911
  Receipt Date: 20190911
  Transmission Date: 20200122
  Serious: Yes (Disabling)
  Sender: FDA-Public Use
  Company Number: None

PATIENT
  Age: 33 Year
  Sex: Female
  Weight: 58.5 kg

DRUGS (3)
  1. MICROGESTIN FE [Concomitant]
     Active Substance: ETHINYL ESTRADIOL\FERROUS FUMARATE\NORETHINDRONE ACETATE
  2. TYLENOL [Concomitant]
     Active Substance: ACETAMINOPHEN
  3. MICROGESTIN FE 1.5/30 [Suspect]
     Active Substance: ETHINYL ESTRADIOL\NORETHINDRONE ACETATE
     Indication: CONTRACEPTION
     Dosage: ?          QUANTITY:1 TABLET(S);?
     Route: 048
     Dates: start: 20190714, end: 20190901

REACTIONS (7)
  - Vomiting [None]
  - Muscle fatigue [None]
  - Vertigo [None]
  - Dizziness [None]
  - Skin tightness [None]
  - Cognitive disorder [None]
  - Nausea [None]
